FAERS Safety Report 7997873-2 (Version None)
Quarter: 2011Q4

REPORT INFORMATION
  Report Type: 
  Country: None (occurrence: None)
  Receive Date: 20111221
  Receipt Date: 20111210
  Transmission Date: 20120403
  Serious: Yes (Other)
  Sender: FDA-Public Use
  Company Number: CA-GLAXOSMITHKLINE-A0958701A

PATIENT
  Sex: Female

DRUGS (1)
  1. NICORETTE [Suspect]
     Indication: PRODUCT USED FOR UNKNOWN INDICATION
     Route: 002

REACTIONS (5)
  - BRAIN NEOPLASM BENIGN [None]
  - URINARY TRACT INFECTION [None]
  - NICOTINE DEPENDENCE [None]
  - CEREBROVASCULAR ACCIDENT [None]
  - INTENTIONAL DRUG MISUSE [None]
